FAERS Safety Report 8172049-7 (Version None)
Quarter: 2012Q1

REPORT INFORMATION
  Report Type: 
  Country: None (occurrence: None)
  Receive Date: 20120228
  Receipt Date: 20120222
  Transmission Date: 20120608
  Serious: Yes (Other)
  Sender: FDA-Public Use
  Company Number: US-ABBOTT-12P-163-0905291-00

PATIENT
  Sex: Female

DRUGS (2)
  1. GABAPENTIN [Concomitant]
     Indication: NEUROPATHY PERIPHERAL
  2. HUMIRA [Suspect]
     Indication: RHEUMATOID ARTHRITIS
     Route: 058
     Dates: start: 20110908

REACTIONS (5)
  - SURGERY [None]
  - NEUROPATHY PERIPHERAL [None]
  - BACK DISORDER [None]
  - MUSCLE SPASMS [None]
  - PARAESTHESIA [None]
